FAERS Safety Report 21810134 (Version 1)
Quarter: 2023Q1

REPORT INFORMATION
  Report Type: Spontaneous
  Country: IN (occurrence: IN)
  Receive Date: 20230103
  Receipt Date: 20230103
  Transmission Date: 20230418
  Serious: Yes (Other)
  Sender: FDA-Public Use
  Company Number: IN-002147023-NVSC2022IN302175

PATIENT
  Age: 75 Year
  Sex: Female

DRUGS (1)
  1. ELTROMBOPAG OLAMINE [Suspect]
     Active Substance: ELTROMBOPAG OLAMINE
     Indication: Aplastic anaemia
     Dosage: UNK, (50 MG QD AND 100 MG QD ON ALTERNATE DAYS IN 2ND LINE)
     Route: 065
     Dates: start: 20221206

REACTIONS (1)
  - Thrombocytopenia [Not Recovered/Not Resolved]
